FAERS Safety Report 21926691 (Version 3)
Quarter: 2023Q1

REPORT INFORMATION
  Report Type: Spontaneous
  Country: BR (occurrence: BR)
  Receive Date: 20230130
  Receipt Date: 20230213
  Transmission Date: 20230417
  Serious: Yes (Other)
  Sender: FDA-Public Use
  Company Number: BR-UCBSA-2023004373

PATIENT
  Sex: Female

DRUGS (2)
  1. VIMPAT [Suspect]
     Active Substance: LACOSAMIDE
     Indication: Product used for unknown indication
     Dosage: 50 MILLIGRAM, 2X/DAY (BID), 50 MG IN THE MORNING AND 50 MG AT NIGHT
     Route: 048
     Dates: start: 20230116, end: 20230124
  2. OLANZAPINE [Concomitant]
     Active Substance: OLANZAPINE
     Indication: Cerebrovascular accident
     Dosage: 5 MILLIGRAM, ONCE DAILY (QD), 1 TABLET AT NIGHT, STARTED 6 MONTHS AGO
     Route: 048
     Dates: start: 202207

REACTIONS (2)
  - Cerebral palsy [Unknown]
  - Hypersensitivity [Unknown]
